FAERS Safety Report 23657323 (Version 1)
Quarter: 2024Q1

REPORT INFORMATION
  Report Type: Spontaneous
  Country: JP (occurrence: JP)
  Receive Date: 20240321
  Receipt Date: 20240321
  Transmission Date: 20240410
  Serious: Yes (Hospitalization, Other)
  Sender: FDA-Public Use
  Company Number: JP-ONO-2024JP003873

PATIENT
  Age: 8 Decade
  Sex: Female

DRUGS (3)
  1. KYPROLIS [Suspect]
     Active Substance: CARFILZOMIB
     Indication: Plasma cell myeloma
     Dosage: UNK
     Route: 041
     Dates: start: 202310
  2. DEXAMETHASONE [Concomitant]
     Active Substance: DEXAMETHASONE
     Indication: Plasma cell myeloma
     Dosage: UNK
     Route: 065
     Dates: start: 202310
  3. DARATUMUMAB [Concomitant]
     Active Substance: DARATUMUMAB
     Indication: Plasma cell myeloma
     Dosage: UNK
     Route: 065
     Dates: start: 202310

REACTIONS (8)
  - Hypertensive encephalopathy [Recovered/Resolved]
  - Thrombotic microangiopathy [Recovered/Resolved]
  - Thrombotic microangiopathy [Recovered/Resolved]
  - Thrombotic microangiopathy [Recovering/Resolving]
  - Thrombotic microangiopathy [Recovering/Resolving]
  - Thrombotic microangiopathy [Recovered/Resolved]
  - Thrombotic microangiopathy [Recovered/Resolved]
  - Thrombotic microangiopathy [Recovered/Resolved]

NARRATIVE: CASE EVENT DATE: 20240101
